FAERS Safety Report 4607244-4 (Version None)
Quarter: 2005Q1

REPORT INFORMATION
  Report Type: 
  Country: None (occurrence: None)
  Receive Date: 20050314
  Receipt Date: 20050304
  Transmission Date: 20050727
  Serious: Yes (Death, Congenital Anomaly)
  Sender: FDA-Public Use
  Company Number: CA-MERCK-0503USA00785

PATIENT
  Weight: 2 kg

DRUGS (1)
  1. COZAAR [Suspect]
     Indication: HYPERTENSION

REACTIONS (10)
  - CONGENITAL ANOMALY [None]
  - DEATH [None]
  - DEATH NEONATAL [None]
  - DRUG EXPOSURE DURING PREGNANCY [None]
  - EXTREMITY CONTRACTURE [None]
  - FACIAL DYSMORPHISM [None]
  - NEONATAL ANURIA [None]
  - OLIGOHYDRAMNIOS [None]
  - PULMONARY HYPOPLASIA [None]
  - ULTRASOUND KIDNEY ABNORMAL [None]
